FAERS Safety Report 8361915 (Version 4)
Quarter: 2013Q1

REPORT INFORMATION
  Report Type: Spontaneous
  Country: US (occurrence: US)
  Receive Date: 20120130
  Receipt Date: 20120627
  Transmission Date: 20140127
  Serious: Yes (Death)
  Sender: FDA-Public Use
  Company Number: PHEH2012US002212

PATIENT
  Age: 58 Year
  Sex: Female
  Weight: 99 kg

DRUGS (12)
  1. RECLAST [Suspect]
     Dosage: 5 MG YEARLY
     Dates: start: 2009
  2. RECLAST [Suspect]
     Dosage: 5 MG YEARLY
     Dates: start: 2010
  3. RECLAST [Suspect]
     Dosage: 5 MG YEARLY
     Dates: start: 2011
  4. RECLAST [Suspect]
     Dosage: 5 MG YEARLY
     Route: 042
     Dates: start: 20120119
  5. TEGRETOL [Concomitant]
  6. MELOXICAM [Concomitant]
  7. BACLOFEN [Concomitant]
  8. DULCOLAX (BISACODYL) [Concomitant]
  9. MIRALAX [Concomitant]
  10. OSCAL [Concomitant]
  11. VITAMIN D [Concomitant]
  12. MULTI-VITAMIN [Concomitant]

REACTIONS (1)
  - DEATH [Fatal]
